FAERS Safety Report 5001615-2 (Version None)
Quarter: 2006Q2

REPORT INFORMATION
  Report Type: 
  Country: None (occurrence: None)
  Receive Date: 20060511
  Receipt Date: 20060511
  Transmission Date: 20061013
  Serious: Yes (Hospitalization)
  Sender: FDA-Public Use
  Company Number: None

PATIENT
  Sex: Female
  Weight: 63 kg

DRUGS (2)
  1. AVASTIN [Suspect]
     Dosage: 640 UG, IV Q15DAYS
     Dates: start: 20060330, end: 20060413
  2. TARCEVA [Suspect]
     Dosage: 15 UG PO QD
     Route: 048
     Dates: start: 20060330, end: 20060427

REACTIONS (4)
  - CONSTIPATION [None]
  - DYSURIA [None]
  - PAIN [None]
  - VAGINAL ULCERATION [None]
